FAERS Safety Report 25827329 (Version 2)
Quarter: 2025Q3

REPORT INFORMATION
  Report Type: Report from Study
  Country: CA (occurrence: CA)
  Receive Date: 20250920
  Receipt Date: 20250926
  Transmission Date: 20251021
  Serious: Yes (Other)
  Sender: ALEXION PHARMACEUTICALS
  Company Number: CA-AstraZeneca-CH-00931904A

PATIENT
  Sex: Male

DRUGS (4)
  1. VOYDEYA [Suspect]
     Active Substance: DANICOPAN
     Indication: Paroxysmal nocturnal haemoglobinuria
  2. VOYDEYA [Suspect]
     Active Substance: DANICOPAN
     Dosage: 100 MILLIGRAM, TID
     Dates: start: 20240620
  3. ULTOMIRIS [Suspect]
     Active Substance: RAVULIZUMAB-CWVZ
     Indication: Paroxysmal nocturnal haemoglobinuria
  4. ULTOMIRIS [Suspect]
     Active Substance: RAVULIZUMAB-CWVZ
     Dosage: 100 MILLIGRAM, TID
     Dates: start: 20240620

REACTIONS (2)
  - Intellectual disability [Unknown]
  - Memory impairment [Not Recovered/Not Resolved]
